FAERS Safety Report 15525692 (Version 1)
Quarter: 2018Q4

REPORT INFORMATION
  Report Type: Spontaneous
  Country: GB (occurrence: GB)
  Receive Date: 20181018
  Receipt Date: 20181018
  Transmission Date: 20190205
  Serious: Yes (Other)
  Sender: FDA-Public Use
  Company Number: GB-MYLANLABS-2018M1078081

PATIENT
  Age: 16 Year
  Sex: Female

DRUGS (2)
  1. PREDNISOLONE. [Suspect]
     Active Substance: PREDNISOLONE
     Indication: ANAEMIA
     Dosage: UNK
     Route: 065
  2. AZATHIOPRINE. [Suspect]
     Active Substance: AZATHIOPRINE
     Indication: AUTOANTIBODY POSITIVE
     Dosage: 1 DF, QD
     Route: 065

REACTIONS (4)
  - Connective tissue disorder [Unknown]
  - Drug effect incomplete [Unknown]
  - Haemorrhage [Unknown]
  - Platelet count decreased [Unknown]
